FAERS Safety Report 25831970 (Version 2)
Quarter: 2025Q4

REPORT INFORMATION
  Report Type: Spontaneous
  Country: TH (occurrence: TH)
  Receive Date: 20250922
  Receipt Date: 20251002
  Transmission Date: 20260117
  Serious: Yes (Hospitalization)
  Sender: ALEXION PHARMACEUTICALS
  Company Number: TH-SA-2025SA281526

PATIENT
  Age: 3 Month
  Sex: Male

DRUGS (1)
  1. BEYFORTUS [Suspect]
     Active Substance: NIRSEVIMAB-ALIP
     Indication: Respiratory syncytial virus infection
     Dosage: 50 MG, 1X

REACTIONS (1)
  - Respiratory syncytial virus infection [Recovered/Resolved]
